FAERS Safety Report 9628665 (Version 1)
Quarter: 2013Q4

REPORT INFORMATION
  Report Type: Spontaneous
  Country: DE (occurrence: DE)
  Receive Date: 20131017
  Receipt Date: 20131017
  Transmission Date: 20140711
  Serious: Yes (Congenital Anomaly)
  Sender: FDA-Public Use
  Company Number: DE-MYLANLABS-2013S1022391

PATIENT
  Sex: Male
  Weight: 2.89 kg

DRUGS (8)
  1. ENALAPRIL [Suspect]
     Route: 064
     Dates: end: 20080918
  2. VOTUM /01635402/ [Suspect]
     Route: 064
     Dates: end: 20080918
  3. CARMEN /01366402/ [Suspect]
     Route: 064
     Dates: end: 20080918
  4. LOPINAVIR W/RITONAVIR [Suspect]
     Route: 064
  5. TRUVADA [Suspect]
     Route: 064
  6. BELOC-ZOC COMP [Concomitant]
     Route: 064
     Dates: start: 20080605, end: 20090226
  7. NIFEDIPIN [Concomitant]
     Route: 064
     Dates: start: 20080920, end: 20090226
  8. METHYLDOPA [Concomitant]
     Route: 064
     Dates: start: 20080920, end: 20090226

REACTIONS (4)
  - Kidney duplex [Not Recovered/Not Resolved]
  - Congenital hearing disorder [Not Recovered/Not Resolved]
  - Supernumerary nipple [Not Recovered/Not Resolved]
  - Exposure during pregnancy [Recovered/Resolved]
